FAERS Safety Report 9274476 (Version 1)
Quarter: 2013Q2

REPORT INFORMATION
  Report Type: Report from Study
  Country: US (occurrence: US)
  Receive Date: 20130507
  Receipt Date: 20130507
  Transmission Date: 20140414
  Serious: Yes (Other)
  Sender: FDA-Public Use
  Company Number: US-ROCHE-1220816

PATIENT
  Age: 61 Year
  Sex: Female
  Weight: 68.55 kg

DRUGS (7)
  1. DIAZEPAM [Suspect]
     Indication: ANXIETY
     Route: 048
     Dates: start: 201303
  2. RIVAROXABAN [Suspect]
     Indication: DEEP VEIN THROMBOSIS
     Route: 048
     Dates: start: 2013, end: 2013
  3. RIVAROXABAN [Suspect]
     Indication: PULMONARY EMBOLISM
     Route: 048
     Dates: start: 2013
  4. WARFARIN SODIUM [Suspect]
     Indication: DEEP VEIN THROMBOSIS
     Route: 048
     Dates: start: 2013
  5. WARFARIN SODIUM [Suspect]
     Indication: PULMONARY EMBOLISM
  6. NEURONTIN [Concomitant]
     Indication: FIBROMYALGIA
     Route: 065
  7. AMBIEN [Concomitant]
     Route: 048
     Dates: start: 201209

REACTIONS (9)
  - Dyspnoea [Unknown]
  - Oxygen saturation decreased [Unknown]
  - Confusional state [Unknown]
  - Visual impairment [Unknown]
  - Insomnia [Unknown]
  - Contusion [Unknown]
  - Anxiety [Unknown]
  - Asthenia [Unknown]
  - Pain [Unknown]
